FAERS Safety Report 5645195-7 (Version None)
Quarter: 2008Q1

REPORT INFORMATION
  Report Type: 
  Country: None (occurrence: None)
  Receive Date: 20080229
  Receipt Date: 20080219
  Transmission Date: 20080703
  Serious: Yes (Disabling)
  Sender: FDA-Public Use
  Company Number: FR-JNJFOC-20080203961

PATIENT
  Age: 66 Year
  Sex: Male

DRUGS (19)
  1. OFLOCET [Suspect]
     Indication: STAPHYLOCOCCAL INFECTION
     Route: 042
  2. OFLOCET [Suspect]
     Route: 048
  3. RIFADIN [Suspect]
     Indication: STAPHYLOCOCCAL INFECTION
     Route: 042
  4. RIFADIN [Suspect]
     Route: 048
  5. INNOHEP [Suspect]
     Indication: STAPHYLOCOCCAL INFECTION
     Route: 058
  6. CIPROFLOXACIN [Concomitant]
     Route: 065
  7. METHOLREXATE [Concomitant]
     Indication: POLYARTHRITIS
     Route: 065
  8. AMLOR [Concomitant]
     Route: 065
  9. FLECAINIDE ACETATE [Concomitant]
     Route: 065
  10. HEMIGOXINE [Concomitant]
     Route: 065
  11. LASILIX [Concomitant]
     Route: 065
  12. LEVOTHYROX [Concomitant]
     Route: 065
  13. REQUIP [Concomitant]
     Route: 065
  14. DALAMYCIN [Concomitant]
     Route: 065
  15. FUCIDINE CAP [Concomitant]
     Route: 065
  16. ORGARAN [Concomitant]
     Route: 066
  17. PREDNISONE TAB [Concomitant]
     Indication: POLYARTHRITIS
     Route: 065
  18. INFLIXIMAB [Concomitant]
     Indication: POLYARTHRITIS
     Route: 050
  19. VANCOMYCIN [Concomitant]
     Route: 065

REACTIONS (1)
  - VASCULAR PURPURA [None]
